FAERS Safety Report 8988995 (Version 1)
Quarter: 2012Q4

REPORT INFORMATION
  Report Type: 
  Country: FR (occurrence: FR)
  Receive Date: 20121228
  Receipt Date: 20121228
  Transmission Date: 20130627
  Serious: Yes (Other)
  Sender: FDA-Public Use
  Company Number: FR-SANOFI-AVENTIS-2012SA094123

PATIENT
  Age: 80 Year
  Sex: Female

DRUGS (4)
  1. STILNOX [Suspect]
     Indication: INSOMNIA
     Route: 048
     Dates: start: 20121105
  2. IPERTEN [Concomitant]
  3. CARTEOL [Concomitant]
  4. CELLUVISC [Concomitant]

REACTIONS (5)
  - Motor dysfunction [Not Recovered/Not Resolved]
  - Urinary incontinence [Not Recovered/Not Resolved]
  - Vertigo [Not Recovered/Not Resolved]
  - Visual acuity reduced [Not Recovered/Not Resolved]
  - Somnambulism [Not Recovered/Not Resolved]
